FAERS Safety Report 19621508 (Version 1)
Quarter: 2021Q3

REPORT INFORMATION
  Report Type: Spontaneous
  Country: IN (occurrence: IN)
  Receive Date: 20210728
  Receipt Date: 20210728
  Transmission Date: 20211014
  Serious: Yes (Death, Other)
  Sender: FDA-Public Use
  Company Number: IN-PFIZER INC-202100919210

PATIENT
  Age: 54 Year
  Sex: Female

DRUGS (8)
  1. PIPERACILLIN/TAZOBACTAM [Suspect]
     Active Substance: PIPERACILLIN SODIUM\TAZOBACTAM SODIUM
     Indication: LOWER RESPIRATORY TRACT INFECTION
     Dosage: UNK
     Dates: start: 2019
  2. VORICONAZOLE. [Suspect]
     Active Substance: VORICONAZOLE
     Indication: ANTIFUNGAL TREATMENT
     Dosage: UNK
     Dates: start: 2019
  3. CASPOFUNGIN [Suspect]
     Active Substance: CASPOFUNGIN
     Indication: ANTIFUNGAL TREATMENT
     Dosage: UNK
     Dates: start: 2019
  4. COLISTIN [Suspect]
     Active Substance: COLISTIN
     Indication: LOWER RESPIRATORY TRACT INFECTION
     Dosage: UNK
     Dates: start: 2019
  5. MEROPENEM. [Suspect]
     Active Substance: MEROPENEM
     Indication: LOWER RESPIRATORY TRACT INFECTION
     Dosage: UNK
     Dates: start: 2019
  6. AZTREONAM. [Suspect]
     Active Substance: AZTREONAM
     Indication: LOWER RESPIRATORY TRACT INFECTION
     Dosage: UNK
     Dates: start: 2019
  7. VANCOMYCIN HCL [Suspect]
     Active Substance: VANCOMYCIN HYDROCHLORIDE
     Indication: LOWER RESPIRATORY TRACT INFECTION
     Dosage: UNK
     Dates: start: 2019
  8. MELPHALAN. [Concomitant]
     Active Substance: MELPHALAN
     Indication: PLASMA CELL MYELOMA
     Dosage: UNK
     Dates: start: 2019

REACTIONS (5)
  - Acute kidney injury [Fatal]
  - Pulmonary alveolar haemorrhage [Unknown]
  - Drug ineffective [Fatal]
  - Shock [Fatal]
  - Acute respiratory failure [Fatal]

NARRATIVE: CASE EVENT DATE: 2019
